FAERS Safety Report 6574857-2 (Version None)
Quarter: 2010Q1

REPORT INFORMATION
  Report Type: 
  Country: None (occurrence: None)
  Receive Date: 20100209
  Receipt Date: 20100125
  Transmission Date: 20100710
  Serious: Yes (Hospitalization)
  Sender: FDA-Public Use
  Company Number: PHHY2010DE04866

PATIENT
  Sex: Female
  Weight: 60 kg

DRUGS (5)
  1. ACLASTA/ZOLEDRONATE T29581+A++OS [Suspect]
     Indication: OSTEOPOROSIS
     Dosage: 5 MG ONCE YEARLY
     Route: 042
     Dates: start: 20100112
  2. VITAMIN D [Concomitant]
     Indication: OSTEOPOROSIS
     Dosage: 2850 IE DAILY
     Dates: start: 20091211
  3. CALCIUM [Concomitant]
     Indication: OSTEOPOROSIS
     Dosage: 300 MG, TID
     Dates: start: 20091211
  4. DEKRISTOL [Concomitant]
     Dosage: WEEKLY
  5. NSAID [Concomitant]
     Dosage: 400 MG, UNK

REACTIONS (5)
  - DIZZINESS [None]
  - FALL [None]
  - LOSS OF CONSCIOUSNESS [None]
  - SKIN LACERATION [None]
  - SURGERY [None]
